FAERS Safety Report 10156628 (Version 1)
Quarter: 2014Q2

REPORT INFORMATION
  Report Type: Spontaneous
  Country: US (occurrence: None)
  Receive Date: 20140505
  Receipt Date: 20140505
  Transmission Date: 20141212
  Serious: No
  Sender: FDA-Public Use
  Company Number: US-I09001-14-00098

PATIENT
  Age: 49 Year
  Sex: Male

DRUGS (3)
  1. ZORVOLEX [Suspect]
     Indication: ARTHRALGIA
     Dosage: 105 MG (35 MG,3 IN 1 D)
     Route: 048
     Dates: start: 20140424, end: 20140426
  2. LIPITOR (ATORVASTATIN CALCIUM) (UNKNOWN) (ATORVASTATIN CALCIUM) [Concomitant]
  3. ALLOPURINOL (ALLOPURINOL) (UNKNOWN) (ALLOPURINOL) [Concomitant]

REACTIONS (8)
  - Gait disturbance [None]
  - Arthralgia [None]
  - Joint stiffness [None]
  - Discomfort [None]
  - Musculoskeletal discomfort [None]
  - Musculoskeletal stiffness [None]
  - Myalgia [None]
  - Discomfort [None]
